FAERS Safety Report 9355091 (Version 1)
Quarter: 2013Q2

REPORT INFORMATION
  Report Type: Spontaneous
  Country: US (occurrence: US)
  Receive Date: 20130619
  Receipt Date: 20130619
  Transmission Date: 20140414
  Serious: No
  Sender: FDA-Public Use
  Company Number: US-009507513-1306USA003222

PATIENT
  Age: 24 Year
  Sex: Female

DRUGS (2)
  1. NEXPLANON [Suspect]
     Indication: CONTRACEPTION
     Dosage: 1 DF, EVERY THREE YEARS
     Route: 059
     Dates: start: 20130522, end: 20130530
  2. NEXPLANON [Suspect]
     Dosage: 1 DF, EVERY THREE YEARS
     Route: 059
     Dates: start: 20130530

REACTIONS (1)
  - Device expulsion [Recovered/Resolved]
